FAERS Safety Report 8389469 (Version 2)
Quarter: 2015Q1

REPORT INFORMATION
  Report Type: Report from Study
  Country: US (occurrence: US)
  Receive Date: 20120203
  Receipt Date: 20150306
  Transmission Date: 20150721
  Serious: Yes (Death, Other)
  Sender: FDA-Public Use
  Company Number: US-ROCHE-1036253

PATIENT
  Sex: Male

DRUGS (10)
  1. AVASTIN [Suspect]
     Active Substance: BEVACIZUMAB
     Indication: MALIGNANT URINARY TRACT NEOPLASM
     Route: 042
     Dates: start: 20061208
  2. ARANESP [Concomitant]
     Active Substance: DARBEPOETIN ALFA
     Route: 042
  3. TYLENOL [Concomitant]
     Active Substance: ACETAMINOPHEN
     Route: 048
  4. BENADRYL [Concomitant]
     Active Substance: DIPHENHYDRAMINE HYDROCHLORIDE
     Route: 048
  5. VICODIN [Concomitant]
     Active Substance: ACETAMINOPHEN\HYDROCODONE BITARTRATE
  6. AVASTIN [Suspect]
     Active Substance: BEVACIZUMAB
     Indication: RENAL CANCER
     Route: 042
  7. ARANESP [Concomitant]
     Active Substance: DARBEPOETIN ALFA
     Route: 042
  8. FENTANYL TRANSDERMAL SYSTEM [Concomitant]
     Active Substance: FENTANYL
     Route: 065
  9. ZOMETA [Concomitant]
     Active Substance: ZOLEDRONIC ACID
     Route: 042
  10. ARANESP [Concomitant]
     Active Substance: DARBEPOETIN ALFA
     Route: 042

REACTIONS (26)
  - Musculoskeletal pain [Unknown]
  - Anaemia [Unknown]
  - Arthralgia [Unknown]
  - Constipation [Unknown]
  - Back pain [Unknown]
  - Bone pain [Unknown]
  - Epistaxis [Unknown]
  - Death [Fatal]
  - Ecchymosis [Unknown]
  - Decreased appetite [Unknown]
  - Tenderness [Unknown]
  - Myalgia [Unknown]
  - Pain [Unknown]
  - Pruritus [Unknown]
  - Pyrexia [Unknown]
  - Eye irritation [Unknown]
  - Cough [Unknown]
  - Weight decreased [Unknown]
  - Headache [Unknown]
  - Chills [Unknown]
  - Metastatic neoplasm [Unknown]
  - Anxiety [Unknown]
  - Depression [Unknown]
  - Increased tendency to bruise [Unknown]
  - Pericardial effusion [Unknown]
  - Renal mass [Unknown]
